FAERS Safety Report 8520723-2 (Version None)
Quarter: 2012Q3

REPORT INFORMATION
  Report Type: 
  Country: None (occurrence: None)
  Receive Date: 20120705
  Receipt Date: 20120625
  Transmission Date: 20120928
  Serious: Yes (Life-Threatening)
  Sender: FDA-Public Use
  Company Number: 2012151666

PATIENT
  Age: 60 Year
  Sex: Male

DRUGS (2)
  1. DALTEPARIN SODIUM [Suspect]
     Indication: DEEP VEIN THROMBOSIS
     Dosage: SUBCUTANEOUS
     Route: 058
     Dates: start: 20120525, end: 20120606
  2. PHENYTOIN (PHENYTOIN) [Suspect]
     Indication: CONVULSION
     Dates: start: 20120401

REACTIONS (9)
  - EYE DISORDER [None]
  - FLUID INTAKE REDUCED [None]
  - ORAL DISORDER [None]
  - APHAGIA [None]
  - PAIN [None]
  - RESPIRATORY FAILURE [None]
  - DEHYDRATION [None]
  - RESPIRATORY TRACT INFECTION [None]
  - TOXIC EPIDERMAL NECROLYSIS [None]
